FAERS Safety Report 5921123-1 (Version None)
Quarter: 2008Q4

REPORT INFORMATION
  Report Type: 
  Country: None (occurrence: None)
  Receive Date: 20081016
  Receipt Date: 20081006
  Transmission Date: 20090506
  Serious: Yes (Death)
  Sender: FDA-Public Use
  Company Number: US-ELI_LILLY_AND_COMPANY-US200808002612

PATIENT
  Age: 38 Year
  Sex: Female
  Weight: 102.4 kg

DRUGS (5)
  1. CYMBALTA [Suspect]
     Indication: DEPRESSION
     Dosage: 60 MG, UNK
     Route: 048
     Dates: start: 20060501, end: 20080701
  2. EFFEXOR [Concomitant]
     Dates: start: 20060101
  3. AMBIEN [Concomitant]
     Indication: INSOMNIA
     Dosage: 12.5 MG, UNK
     Route: 048
     Dates: start: 20070601
  4. VYTORIN [Concomitant]
     Indication: BLOOD CHOLESTEROL INCREASED
     Route: 048
     Dates: start: 20080101
  5. RELPAX [Concomitant]
     Indication: MIGRAINE
     Dosage: 40 MG, AS NEEDED
     Route: 048
     Dates: start: 20051201

REACTIONS (1)
  - COMPLETED SUICIDE [None]
